FAERS Safety Report 7567589 (Version 2)
Quarter: 2013Q3

REPORT INFORMATION
  Report Type: Spontaneous
  Country: US (occurrence: US)
  Receive Date: 20100831
  Receipt Date: 20130906
  Transmission Date: 20140515
  Serious: Yes (Hospitalization)
  Sender: FDA-Public Use
  Company Number: US-RANBAXY-2010US-37611

PATIENT
  Age: 14 Year
  Sex: Male

DRUGS (4)
  1. MINOCYCLINE HYDROCHLORIDE [Suspect]
     Indication: ACNE
     Dosage: UNK, UNK
     Route: 065
  2. ADDERALL XR [Concomitant]
     Indication: MENTAL DISORDER
     Route: 065
  3. LITHIUM [Concomitant]
     Indication: MENTAL DISORDER
  4. QUETIAPINE [Concomitant]
     Indication: MENTAL DISORDER

REACTIONS (2)
  - Drug reaction with eosinophilia and systemic symptoms [Recovered/Resolved]
  - Autoimmune thyroiditis [Recovering/Resolving]
